FAERS Safety Report 9187951 (Version 1)
Quarter: 2013Q1

REPORT INFORMATION
  Report Type: Spontaneous
  Country: US (occurrence: US)
  Receive Date: 20130325
  Receipt Date: 20130325
  Transmission Date: 20140127
  Serious: No
  Sender: FDA-Public Use
  Company Number: US-MYLANLABS-2012S1020035

PATIENT
  Age: 80 Year
  Sex: Female
  Weight: 78.47 kg

DRUGS (9)
  1. FENTANYL TRANSDERMAL SYSTEM [Suspect]
     Indication: ARTHRALGIA
     Dosage: Q72HR
     Route: 062
     Dates: start: 201201
  2. VICODIN [Concomitant]
     Indication: ARTHRALGIA
  3. NEURONTIN [Concomitant]
     Indication: PERIPHERAL VASCULAR DISORDER
  4. PRENATAL VITAMINS [Concomitant]
  5. ZANTAC [Concomitant]
     Dates: end: 20120902
  6. ASA [Concomitant]
  7. CHOLESTEROL MEDICATION [Concomitant]
     Indication: BLOOD CHOLESTEROL INCREASED
  8. REQUIP [Concomitant]
  9. LORATADINE [Concomitant]

REACTIONS (4)
  - Drug effect decreased [Not Recovered/Not Resolved]
  - Pain [Not Recovered/Not Resolved]
  - Application site erythema [Recovered/Resolved]
  - Incorrect drug administration duration [Recovered/Resolved]
